FAERS Safety Report 24604719 (Version 1)
Quarter: 2024Q4

REPORT INFORMATION
  Report Type: Spontaneous
  Country: DE (occurrence: DE)
  Receive Date: 20241111
  Receipt Date: 20241111
  Transmission Date: 20250114
  Serious: Yes (Other)
  Sender: NOVARTIS
  Company Number: DE-002147023-NVSC2024DE216943

PATIENT
  Age: 39 Year
  Sex: Female

DRUGS (1)
  1. KESIMPTA [Suspect]
     Active Substance: OFATUMUMAB
     Indication: Relapsing multiple sclerosis
     Dosage: UNK
     Route: 065

REACTIONS (13)
  - B-lymphocyte count decreased [Unknown]
  - Mean cell haemoglobin increased [Unknown]
  - Infection [Unknown]
  - Bronchitis [Unknown]
  - Pharyngitis [Unknown]
  - Vaginal infection [Unknown]
  - Neck pain [Unknown]
  - Lymphadenopathy [Unknown]
  - Lymphocyte count decreased [Unknown]
  - Eosinophil count increased [Unknown]
  - T-lymphocyte count decreased [Unknown]
  - T-lymphocyte count decreased [Unknown]
  - Epstein-Barr virus antibody positive [Unknown]
